FAERS Safety Report 6268967-7 (Version None)
Quarter: 2009Q3

REPORT INFORMATION
  Report Type: 
  Country: None (occurrence: None)
  Receive Date: 20090715
  Receipt Date: 20090707
  Transmission Date: 20100115
  Serious: Yes (Hospitalization, Other)
  Sender: FDA-Public Use
  Company Number: HQWYE257604JUN04

PATIENT
  Sex: Female

DRUGS (3)
  1. PREMPRO [Suspect]
     Indication: HORMONE REPLACEMENT THERAPY
     Dosage: UNSPECIFIED
     Route: 048
  2. PROVERA [Suspect]
  3. PREMARIN [Suspect]

REACTIONS (2)
  - BREAST CANCER METASTATIC [None]
  - DEEP VEIN THROMBOSIS [None]
